FAERS Safety Report 6771099-2 (Version None)
Quarter: 2010Q2

REPORT INFORMATION
  Report Type: 
  Country: None (occurrence: None)
  Receive Date: 20100616
  Receipt Date: 20100607
  Transmission Date: 20101027
  Serious: Yes (Hospitalization)
  Sender: FDA-Public Use
  Company Number: US-JNJFOC-20100604238

PATIENT
  Sex: Female

DRUGS (12)
  1. IMODIUM [Suspect]
     Indication: DIARRHOEA
     Route: 048
  2. IRINOTECAN HYDROCHLORIDE [Suspect]
     Indication: NON-SMALL CELL LUNG CANCER
     Route: 048
  3. CAPECITABINE [Suspect]
     Indication: NON-SMALL CELL LUNG CANCER
     Dosage: FOR 9 DAYS
     Route: 048
  4. OXYCODONE [Concomitant]
     Indication: PAIN
     Route: 065
  5. LOMOTIL [Concomitant]
     Route: 065
  6. HYOSCYAMINE [Concomitant]
     Indication: DIARRHOEA
     Route: 065
  7. ZOFRAN [Concomitant]
     Route: 042
  8. COMPAZINE [Concomitant]
     Route: 042
  9. PEPCID [Concomitant]
     Route: 042
  10. REGLAN [Concomitant]
     Route: 042
  11. MORPHINE [Concomitant]
     Route: 042
  12. BENTYL [Concomitant]
     Indication: DIARRHOEA
     Route: 065

REACTIONS (3)
  - BLOOD POTASSIUM DECREASED [None]
  - DEHYDRATION [None]
  - ILEUS [None]
